FAERS Safety Report 9192911 (Version 2)
Quarter: 2013Q2

REPORT INFORMATION
  Report Type: Spontaneous
  Country: IT (occurrence: IT)
  Receive Date: 20130327
  Receipt Date: 20130503
  Transmission Date: 20140414
  Serious: Yes (Hospitalization)
  Sender: FDA-Public Use
  Company Number: IT-BRISTOL-MYERS SQUIBB COMPANY-18695544

PATIENT
  Age: 78 Year
  Sex: Female

DRUGS (4)
  1. COUMADIN TABS 5 MG [Suspect]
     Indication: CARDIAC VALVE DISEASE
     Dosage: 1DF=1 UNIT
     Route: 048
     Dates: start: 20120101, end: 20130121
  2. CALCIUM CARBONATE [Concomitant]
  3. FUROSEMIDE [Concomitant]
     Dosage: TABS
  4. LANOXIN [Concomitant]
     Dosage: TABS

REACTIONS (1)
  - Hypovolaemic shock [Unknown]
